FAERS Safety Report 5132265-5 (Version None)
Quarter: 2006Q4

REPORT INFORMATION
  Report Type: 
  Country: None (occurrence: None)
  Receive Date: 20061017
  Receipt Date: 20061010
  Transmission Date: 20070319
  Serious: Yes (Hospitalization)
  Sender: FDA-Public Use
  Company Number: TAP2006Q01689

PATIENT
  Age: 22 Year
  Sex: Female

DRUGS (1)
  1. LUPRON DEPOT-3 [Suspect]
     Indication: ENDOMETRIOSIS
     Dosage: 3.75 MG, 1 IN 1 M, INTRAMUSCULAR
     Route: 030
     Dates: start: 20060928

REACTIONS (5)
  - BENIGN UTERINE NEOPLASM [None]
  - DEHYDRATION [None]
  - OVARIAN CYST RUPTURED [None]
  - PELVIC PAIN [None]
  - VOMITING [None]
